FAERS Safety Report 5965374-9 (Version None)
Quarter: 2008Q4

REPORT INFORMATION
  Report Type: 
  Country: None (occurrence: None)
  Receive Date: 20081125
  Receipt Date: 20081114
  Transmission Date: 20090506
  Serious: No
  Sender: FDA-Public Use
  Company Number: US-JNJFOC-20081104176

PATIENT
  Sex: Male
  Weight: 74.84 kg

DRUGS (7)
  1. DURAGESIC-100 [Suspect]
     Indication: CHEST PAIN
     Route: 062
     Dates: start: 20080601
  2. LIPITOR [Concomitant]
     Indication: BLOOD CHOLESTEROL
     Route: 048
     Dates: start: 20080501
  3. WARFARIN SODIUM [Concomitant]
     Indication: ANTICOAGULANT THERAPY
     Route: 048
     Dates: start: 20080501
  4. ISORBID [Concomitant]
     Indication: BLOOD PRESSURE
     Route: 048
     Dates: start: 20080501
  5. TOPROL-XL [Concomitant]
     Indication: BLOOD PRESSURE
     Route: 048
     Dates: start: 19980101
  6. NORVASC [Concomitant]
     Indication: BLOOD PRESSURE
     Route: 048
     Dates: start: 19980101
  7. ZOLOFT [Concomitant]
     Indication: ANXIETY
     Route: 048
     Dates: start: 20070101

REACTIONS (5)
  - ANXIETY [None]
  - APPLICATION SITE DRYNESS [None]
  - APPLICATION SITE EROSION [None]
  - INAPPROPRIATE SCHEDULE OF DRUG ADMINISTRATION [None]
  - INSOMNIA [None]
